FAERS Safety Report 8789520 (Version 1)
Quarter: 2012Q4

REPORT INFORMATION
  Report Type: Spontaneous
  Country: US (occurrence: None)
  Receive Date: 20120910
  Receipt Date: 20120910
  Transmission Date: 20130627
  Serious: Yes (Life-Threatening)
  Sender: FDA-Public Use
  Company Number: None

PATIENT
  Age: 78 Year
  Sex: Female
  Weight: 60 kg

DRUGS (1)
  1. CARBOPLATIN [Suspect]
     Indication: LUNG CANCER
     Dosage: 22 Doses, every 2 weeks
     Route: 042

REACTIONS (5)
  - Dyspnoea [None]
  - Respiratory distress [None]
  - Erythema [None]
  - Infusion related reaction [None]
  - Anaphylactic reaction [None]
